FAERS Safety Report 10550990 (Version 2)
Quarter: 2015Q1

REPORT INFORMATION
  Report Type: Spontaneous
  Country: US (occurrence: None)
  Receive Date: 20141020
  Receipt Date: 20150120
  Transmission Date: 20150720
  Serious: No
  Sender: FDA-Public Use
  Company Number: AEGR000602

PATIENT
  Age: 52 Year
  Sex: Female
  Weight: 136.1 kg

DRUGS (10)
  1. RANEXA (RANOLAZINE) [Concomitant]
  2. BRILINTA [Concomitant]
     Active Substance: TICAGRELOR
  3. JUXTAPID [Suspect]
     Active Substance: LOMITAPIDE MESYLATE
     Indication: TYPE IIA HYPERLIPIDAEMIA
     Route: 048
     Dates: start: 201406, end: 20140717
  4. METOPROLOL SUCCINATE. [Concomitant]
     Active Substance: METOPROLOL SUCCINATE
  5. DOCUSATE [Concomitant]
     Active Substance: DOCUSATE
  6. VITAMIN D [Concomitant]
     Active Substance: CHOLECALCIFEROL
  7. CRESTOR [Concomitant]
     Active Substance: ROSUVASTATIN CALCIUM
  8. ISOSORBIDE DINITRATE (ISOSORBIDE DINITRATE) (ISOSORBIDE DINITRATE) [Concomitant]
     Active Substance: ISOSORBIDE DINITRATE
  9. LISINOPRIL/HCTZ (HYDROCHLOROTHIAZIDE, LISINOPRIL) [Concomitant]
  10. ASPIRIN (ACETYLSALICYLIC ACID) [Concomitant]
     Active Substance: ASPIRIN

REACTIONS (10)
  - Arthralgia [None]
  - Pelvic pain [None]
  - Epistaxis [None]
  - Decreased appetite [None]
  - Insomnia [None]
  - Photophobia [None]
  - Asthenia [None]
  - Headache [None]
  - Coccydynia [None]
  - Diarrhoea [None]

NARRATIVE: CASE EVENT DATE: 201407
